FAERS Safety Report 11844010 (Version 3)
Quarter: 2016Q3

REPORT INFORMATION
  Report Type: Spontaneous
  Country: US (occurrence: US)
  Receive Date: 20151217
  Receipt Date: 20160831
  Transmission Date: 20161109
  Serious: Yes (Other)
  Sender: FDA-Public Use
  Company Number: US-AUROBINDO-AUR-APU-2015-11267

PATIENT
  Sex: Male

DRUGS (1)
  1. LEVOFLOXACIN INJECTION [Suspect]
     Active Substance: LEVOFLOXACIN
     Indication: PRODUCT USED FOR UNKNOWN INDICATION
     Dosage: UNK
     Route: 042
     Dates: start: 20150910, end: 20150913

REACTIONS (9)
  - Colitis [Recovering/Resolving]
  - Muscle spasms [Recovering/Resolving]
  - Loss of consciousness [Recovering/Resolving]
  - Dysuria [Recovering/Resolving]
  - Pruritus [Recovering/Resolving]
  - Pain [Recovering/Resolving]
  - Drug dispensing error [Recovering/Resolving]
  - Cardiac disorder [Recovering/Resolving]
  - Diarrhoea [Recovering/Resolving]
